FAERS Safety Report 25159090 (Version 2)
Quarter: 2025Q2

REPORT INFORMATION
  Report Type: Spontaneous
  Country: GB (occurrence: GB)
  Receive Date: 20250404
  Receipt Date: 20250408
  Transmission Date: 20250716
  Serious: Yes (Hospitalization)
  Sender: GENMAB
  Company Number: GB-ABBVIE-6206667

PATIENT
  Sex: Female

DRUGS (1)
  1. EPCORITAMAB [Suspect]
     Active Substance: EPCORITAMAB
     Indication: Diffuse large B-cell lymphoma
     Route: 058
     Dates: start: 20241031

REACTIONS (2)
  - Diffuse large B-cell lymphoma [Unknown]
  - Therapeutic product effect incomplete [Unknown]
